FAERS Safety Report 4949826-6 (Version None)
Quarter: 2006Q1

REPORT INFORMATION
  Report Type: 
  Country: None (occurrence: None)
  Receive Date: 20060315
  Receipt Date: 20060310
  Transmission Date: 20060701
  Serious: Yes (Hospitalization, Other)
  Sender: FDA-Public Use
  Company Number: THQ2005A00935

PATIENT
  Age: 70 Year

DRUGS (6)
  1. LEUPROLIDE ACETATE [Suspect]
     Dosage: 22.5 MG; (22.5 MG, 1 IN 2 M)
     Dates: start: 20041012, end: 20050110
  2. ZOLEDRONIC ACID [Suspect]
     Dosage: 40 MG/100 MG;
     Dates: start: 20041018, end: 20050818
  3. ATENOLOL [Suspect]
     Indication: HYPERTENSION
     Dosage: 50 MG;
     Dates: end: 20051024
  4. PERINDOPRIL [Concomitant]
  5. AMLODIPINE BESYLATE [Concomitant]
  6. FUROSEMIDE [Concomitant]

REACTIONS (10)
  - BLOOD PRESSURE INCREASED [None]
  - BONE FRAGMENTATION [None]
  - FALL [None]
  - HAND FRACTURE [None]
  - HYPOTENSION [None]
  - OSTEONECROSIS [None]
  - SCRATCH [None]
  - SINUS BRADYCARDIA [None]
  - SYNCOPE [None]
  - X-RAY LIMB ABNORMAL [None]
